FAERS Safety Report 25614637 (Version 1)
Quarter: 2025Q3

REPORT INFORMATION
  Report Type: Spontaneous
  Country: EU (occurrence: EU)
  Receive Date: 20250729
  Receipt Date: 20250729
  Transmission Date: 20251021
  Serious: Yes (Other)
  Sender: CELLTRION
  Company Number: EU-ROCHE-10000258165

PATIENT

DRUGS (1)
  1. RITUXIMAB [Suspect]
     Active Substance: RITUXIMAB
     Indication: Product used for unknown indication
     Route: 065

REACTIONS (10)
  - Renal injury [Unknown]
  - Memory impairment [Unknown]
  - Cognitive disorder [Unknown]
  - Disturbance in attention [Unknown]
  - Hypersensitivity [Unknown]
  - Cardiac disorder [Unknown]
  - Hypertension [Unknown]
  - Tachycardia [Unknown]
  - Fatigue [Unknown]
  - Pyrexia [Unknown]
